FAERS Safety Report 13892430 (Version 6)
Quarter: 2018Q4

REPORT INFORMATION
  Report Type: Report from Study
  Country: DE (occurrence: DE)
  Receive Date: 20170822
  Receipt Date: 20181031
  Transmission Date: 20190204
  Serious: Yes (Other)
  Sender: FDA-Public Use
  Company Number: DE-BAYER-2017-152947

PATIENT
  Age: 45 Year
  Sex: Male

DRUGS (1)
  1. BETAFERON [Suspect]
     Active Substance: INTERFERON BETA-1B
     Indication: MULTIPLE SCLEROSIS
     Dosage: 250 ?G, QOD
     Route: 058
     Dates: start: 19950101

REACTIONS (8)
  - Influenza like illness [Recovered/Resolved]
  - Product quality issue [Unknown]
  - Spinal pain [Unknown]
  - Bone pain [Unknown]
  - Diplegia [Recovered/Resolved]
  - Injection site reaction [Not Recovered/Not Resolved]
  - Adverse drug reaction [Unknown]
  - Influenza like illness [Not Recovered/Not Resolved]

NARRATIVE: CASE EVENT DATE: 20170808
